FAERS Safety Report 6859476-2 (Version None)
Quarter: 2010Q3

REPORT INFORMATION
  Report Type: 
  Country: None (occurrence: None)
  Receive Date: 20100719
  Receipt Date: 20080227
  Transmission Date: 20110219
  Serious: No
  Sender: FDA-Public Use
  Company Number: US-PFIZER INC-2008020786

PATIENT
  Sex: Female
  Weight: 77.1 kg

DRUGS (4)
  1. CHANTIX [Suspect]
     Indication: SMOKING CESSATION THERAPY
     Route: 048
     Dates: start: 20071101, end: 20080201
  2. CLONIDINE [Concomitant]
     Indication: HYPERTENSION
  3. GABAPENTIN [Concomitant]
  4. TRAMADOL [Concomitant]

REACTIONS (7)
  - ABNORMAL BEHAVIOUR [None]
  - AGGRESSION [None]
  - NIGHTMARE [None]
  - PHOTOPHOBIA [None]
  - SCREAMING [None]
  - SOMNOLENCE [None]
  - TREMOR [None]
